FAERS Safety Report 6316998-0 (Version None)
Quarter: 2009Q3

REPORT INFORMATION
  Report Type: 
  Country: None (occurrence: None)
  Receive Date: 20090820
  Receipt Date: 20090602
  Transmission Date: 20100115
  Serious: Yes (Death, Hospitalization)
  Sender: FDA-Public Use
  Company Number: US-ROCHE-630958

PATIENT
  Sex: Male

DRUGS (3)
  1. PEG-INTERFERON A-2A (RO 25-8310) [Suspect]
     Indication: HEPATITIS C
     Dosage: FORM REPORTED AS: PFS
     Route: 065
     Dates: start: 20090302
  2. RIBAVIRIN [Suspect]
     Indication: HEPATITIS C
     Route: 065
     Dates: start: 20090302
  3. LASIX [Concomitant]

REACTIONS (5)
  - CARDIOVASCULAR DISORDER [None]
  - HYPOPHAGIA [None]
  - MALNUTRITION [None]
  - PROTEIN TOTAL DECREASED [None]
  - SWELLING [None]
